FAERS Safety Report 6860309-9 (Version None)
Quarter: 2010Q3

REPORT INFORMATION
  Report Type: 
  Country: None (occurrence: None)
  Receive Date: 20100720
  Receipt Date: 20100712
  Transmission Date: 20110219
  Serious: Yes (Life-Threatening, Hospitalization)
  Sender: FDA-Public Use
  Company Number: -SANOFI-AVENTIS-2010SA040197

PATIENT
  Age: 73 Year
  Sex: Female
  Weight: 85 kg

DRUGS (4)
  1. INDAPAMIDE [Suspect]
     Indication: HYPERTENSION
     Route: 048
     Dates: start: 20080401, end: 20100419
  2. STRONTIUM RANELATE [Suspect]
     Indication: OSTEOPOROSIS
     Route: 048
     Dates: start: 20100215, end: 20100419
  3. CACIT D3 [Suspect]
     Indication: OSTEOPOROSIS
     Route: 065
     Dates: start: 20040101
  4. DI-ANTALVIC [Suspect]
     Indication: PAIN
     Route: 065
     Dates: start: 20030101

REACTIONS (1)
  - MYOCARDIAL INFARCTION [None]
